FAERS Safety Report 4351112-2 (Version None)
Quarter: 2004Q2

REPORT INFORMATION
  Report Type: 
  Country: None (occurrence: None)
  Receive Date: 20040430
  Receipt Date: 20040421
  Transmission Date: 20050107
  Serious: Yes (Hospitalization)
  Sender: FDA-Public Use
  Company Number: DE-MERCK-0404DEU00114

PATIENT
  Age: 70 Year
  Sex: Female

DRUGS (2)
  1. EZETIMIBE [Suspect]
     Route: 048
     Dates: end: 20040101
  2. MOXONIDINE [Concomitant]
     Route: 065
     Dates: end: 20040101

REACTIONS (3)
  - HEPATIC NECROSIS [None]
  - HEPATITIS [None]
  - HEPATOCELLULAR DAMAGE [None]
